FAERS Safety Report 23560591 (Version 2)
Quarter: 2024Q2

REPORT INFORMATION
  Report Type: Spontaneous
  Country: US (occurrence: US)
  Receive Date: 20240223
  Receipt Date: 20240411
  Transmission Date: 20240715
  Serious: No
  Sender: FDA-Public Use
  Company Number: US-Calliditas-2024CAL00221

PATIENT
  Age: 56 Year
  Sex: Male

DRUGS (2)
  1. TARPEYO [Suspect]
     Active Substance: BUDESONIDE
     Indication: IgA nephropathy
     Dosage: 16 MG (4 MG CAPSULES) ONCE DAILY
     Route: 048
     Dates: start: 20230725
  2. FILSPARI [Suspect]
     Active Substance: SPARSENTAN

REACTIONS (5)
  - Ocular hyperaemia [Unknown]
  - Rash papular [Unknown]
  - Joint swelling [Unknown]
  - Blood pressure increased [Unknown]
  - Swelling [Unknown]
